FAERS Safety Report 5389288-0 (Version None)
Quarter: 2007Q3

REPORT INFORMATION
  Report Type: 
  Country: None (occurrence: None)
  Receive Date: 20070713
  Receipt Date: 20070702
  Transmission Date: 20080115
  Serious: Yes (Death)
  Sender: FDA-Public Use
  Company Number: B0478616A

PATIENT
  Age: 64 Year
  Sex: Male

DRUGS (2)
  1. TOSITUMOMAB (FORMULATION UNKNOWN) (GENERIC) (TOSITUMOMAB) [Suspect]
     Indication: NON-HODGKIN'S LYMPHOMA
  2. FLUDARABINE PHOSPHATE [Concomitant]

REACTIONS (3)
  - ACUTE MYELOID LEUKAEMIA [None]
  - CHRONIC MYELOMONOCYTIC LEUKAEMIA [None]
  - REFUSAL OF TREATMENT BY PATIENT [None]
